FAERS Safety Report 9563471 (Version 1)
Quarter: 2013Q3

REPORT INFORMATION
  Report Type: Spontaneous
  Country: FR (occurrence: None)
  Receive Date: 20130926
  Receipt Date: 20130926
  Transmission Date: 20140515
  Serious: Yes (Hospitalization)
  Sender: FDA-Public Use
  Company Number: 1885791

PATIENT
  Age: 62 Year
  Sex: Male

DRUGS (2)
  1. CARBOPLATIN [Suspect]
     Indication: LUNG ADENOCARCINOMA
     Dosage: 380 MG MILLIGRAM (S), UNKNOWN, INTRAVENOUS
     Dates: start: 20120209, end: 20120209
  2. ALIMTA [Suspect]
     Indication: LUNG ADENOCARCINOMA
     Route: 042
     Dates: start: 20120209, end: 20120209

REACTIONS (8)
  - Oesophageal stenosis [None]
  - Renal failure acute [None]
  - Diarrhoea [None]
  - Neutropenia [None]
  - Weight decreased [None]
  - General physical health deterioration [None]
  - Decreased appetite [None]
  - Dysphagia [None]
